FAERS Safety Report 23128089 (Version 6)
Quarter: 2024Q1

REPORT INFORMATION
  Report Type: Spontaneous
  Country: DE (occurrence: DE)
  Receive Date: 20231031
  Receipt Date: 20240211
  Transmission Date: 20240410
  Serious: Yes (Hospitalization)
  Sender: FDA-Public Use
  Company Number: DE-SAMSUNG BIOEPIS-SB-2023-12825

PATIENT
  Age: 68 Year
  Sex: Male
  Weight: 107 kg

DRUGS (19)
  1. LEUCOVORIN CALCIUM [Suspect]
     Active Substance: LEUCOVORIN CALCIUM
     Dosage: 200 MG
     Route: 042
     Dates: start: 20230425
  2. LEUCOVORIN CALCIUM [Suspect]
     Active Substance: LEUCOVORIN CALCIUM
     Dosage: 350 MG
     Route: 042
  3. LEUCOVORIN CALCIUM [Suspect]
     Active Substance: LEUCOVORIN CALCIUM
     Indication: HER2 positive gastric cancer
     Dosage: 450 MG
     Route: 042
     Dates: start: 20230424
  4. DOCETAXEL [Suspect]
     Active Substance: DOCETAXEL\DOCETAXEL ANHYDROUS
     Indication: HER2 positive gastric cancer
     Dosage: 112 MG
     Route: 042
     Dates: start: 20230424
  5. DOCETAXEL [Suspect]
     Active Substance: DOCETAXEL\DOCETAXEL ANHYDROUS
     Dosage: 114 MG
     Route: 042
     Dates: start: 20230425
  6. DOCETAXEL [Suspect]
     Active Substance: DOCETAXEL\DOCETAXEL ANHYDROUS
     Dosage: 50 MG
     Route: 042
     Dates: start: 20230425
  7. DOCETAXEL [Suspect]
     Active Substance: DOCETAXEL\DOCETAXEL ANHYDROUS
     Dosage: 90 MG
     Route: 042
  8. FLUOROURACIL [Suspect]
     Active Substance: FLUOROURACIL
     Dosage: 2600 MG
     Route: 042
     Dates: start: 20230425
  9. FLUOROURACIL [Suspect]
     Active Substance: FLUOROURACIL
     Dosage: 4700 MG
     Route: 042
  10. FLUOROURACIL [Suspect]
     Active Substance: FLUOROURACIL
     Dosage: 5850 MG
     Route: 042
     Dates: start: 20230425
  11. FLUOROURACIL [Suspect]
     Active Substance: FLUOROURACIL
     Indication: HER2 positive gastric cancer
     Dosage: 5950 MG
     Route: 042
     Dates: start: 20230425
  12. OXALIPLATIN [Suspect]
     Active Substance: OXALIPLATIN
     Dosage: 155 MG
     Route: 042
  13. OXALIPLATIN [Suspect]
     Active Substance: OXALIPLATIN
     Indication: HER2 positive gastric cancer
     Dosage: 190 MG
     Route: 042
     Dates: start: 20230424
  14. OXALIPLATIN [Suspect]
     Active Substance: OXALIPLATIN
     Dosage: 195 MG
     Route: 042
     Dates: start: 20230425
  15. OXALIPLATIN [Suspect]
     Active Substance: OXALIPLATIN
     Dosage: 85 MG
     Route: 042
     Dates: start: 20230425
  16. ONTRUZANT [Suspect]
     Active Substance: TRASTUZUMAB-DTTB
     Dosage: 896.000MG
     Route: 042
     Dates: start: 20230424
  17. ONTRUZANT [Suspect]
     Active Substance: TRASTUZUMAB-DTTB
     Indication: HER2 positive gastric cancer
     Dosage: 642.000MG
     Route: 042
     Dates: start: 20230424
  18. ONTRUZANT [Suspect]
     Active Substance: TRASTUZUMAB-DTTB
     Dosage: 8.000MG
     Route: 042
     Dates: start: 20230424
  19. PEMBROLIZUMAB [Suspect]
     Active Substance: PEMBROLIZUMAB
     Indication: HER2 positive gastric cancer
     Dosage: DOSE: 200 (UNSPECIFIED UNIT)
     Route: 042
     Dates: start: 20230424, end: 20230515

REACTIONS (5)
  - Immune-mediated enterocolitis [Unknown]
  - Gastric stenosis [Recovered/Resolved]
  - Diarrhoea [Recovered/Resolved]
  - Product use in unapproved indication [Unknown]
  - Off label use [Unknown]

NARRATIVE: CASE EVENT DATE: 20230425
